FAERS Safety Report 7472947-3 (Version None)
Quarter: 2011Q2

REPORT INFORMATION
  Report Type: 
  Country: None (occurrence: None)
  Receive Date: 20110503
  Receipt Date: 20110419
  Transmission Date: 20111010
  Serious: Yes (Other)
  Sender: FDA-Public Use
  Company Number: 031465

PATIENT
  Sex: Female
  Weight: 89.8 kg

DRUGS (12)
  1. VITAMIN B12 /00056201/ [Concomitant]
  2. TURMERIC [Concomitant]
  3. FOLIC ACID [Concomitant]
  4. CELEBREX [Concomitant]
  5. PREDNISONE [Concomitant]
  6. CIMZIA [Suspect]
     Indication: RHEUMATOID ARTHRITIS
     Dosage: (DOSE : 2 SHOTS OF 1CC SUBCUTANEOUS)
     Route: 058
     Dates: start: 20101001, end: 20110228
  7. CIMZIA [Suspect]
     Indication: PSORIATIC ARTHROPATHY
     Dosage: (DOSE : 2 SHOTS OF 1CC SUBCUTANEOUS)
     Route: 058
     Dates: start: 20101001, end: 20110228
  8. LORTAB [Concomitant]
  9. HYZAAR /01284801/ [Concomitant]
  10. SYNTHROID [Concomitant]
  11. SINGULAIR [Concomitant]
  12. LOVAZA [Concomitant]

REACTIONS (18)
  - PALPITATIONS [None]
  - OESOPHAGEAL SPASM [None]
  - STOMATITIS [None]
  - FATIGUE [None]
  - HYPOAESTHESIA ORAL [None]
  - ONYCHOMADESIS [None]
  - THYROID FUNCTION TEST ABNORMAL [None]
  - CHEST DISCOMFORT [None]
  - HYPOAESTHESIA [None]
  - DYSPNOEA [None]
  - OXYGEN SATURATION DECREASED [None]
  - HEART RATE INCREASED [None]
  - SKIN LESION [None]
  - HYPERTENSION [None]
  - PARAESTHESIA [None]
  - ULCER [None]
  - BLOOD PRESSURE DIASTOLIC DECREASED [None]
  - DRUG HYPERSENSITIVITY [None]
